FAERS Safety Report 20360297 (Version 1)
Quarter: 2022Q1

REPORT INFORMATION
  Report Type: Other
  Country: CN (occurrence: None)
  Receive Date: 20220121
  Receipt Date: 20220121
  Transmission Date: 20220424
  Serious: Yes (Other)
  Sender: FDA-Public Use
  Company Number: CN-ROCHE-3000646

PATIENT

DRUGS (6)
  1. BEVACIZUMAB [Suspect]
     Active Substance: BEVACIZUMAB
     Indication: Lung adenocarcinoma
     Dosage: 250 ML NORMAL SALINE SOLUTION FOR INTRAVENOUS DRIP, DAY1, CONTINUOUS TREATMENT FOR 21 DAYS WAS A CYC
     Route: 041
  2. PEMETREXED [Suspect]
     Active Substance: PEMETREXED
     Indication: Lung adenocarcinoma
     Dosage: 100 ML NORMAL SALINE WERE PREPARED INTO A MIXED LIQUID FOR THE PATIENTS FOR 30 MIN OF INTRAVENOUS DR
     Route: 041
  3. LOBAPLATIN [Suspect]
     Active Substance: LOBAPLATIN
     Indication: Lung adenocarcinoma
     Dosage: 250 ML, 5% GLUCOSE SOLUTION FOR 2 H OF INTRAVENOUS DRIP, DAY1, CONTINUOUS TREATMENT FOR 21 DAYS WAS
     Route: 041
  4. CISPLATIN [Suspect]
     Active Substance: CISPLATIN
     Indication: Lung adenocarcinoma
     Dosage: 250 ML NORMAL SALINE WERE PREPARED INTO A MIXED LIQUID FOR PATIENTS TO RECEIVE INTRAVENOUS DRIP, THE
     Route: 041
  5. FOLIC ACID [Concomitant]
     Active Substance: FOLIC ACID
     Route: 048
  6. DEXAMETHASONE [Concomitant]
     Active Substance: DEXAMETHASONE
     Dosage: 1D BEFORE, ON THE SAME DAY OF AND 1D AFTER ADMINISTRATION
     Route: 048

REACTIONS (4)
  - Myelosuppression [Unknown]
  - Gastrointestinal disorder [Unknown]
  - Rash [Unknown]
  - Platelet count decreased [Unknown]
